FAERS Safety Report 8160178-3 (Version None)
Quarter: 2012Q1

REPORT INFORMATION
  Report Type: 
  Country: None (occurrence: None)
  Receive Date: 20120103
  Receipt Date: 20111119
  Transmission Date: 20120608
  Serious: No
  Sender: FDA-Public Use
  Company Number: AE-2011-003799

PATIENT
  Age: 53 Year
  Sex: Male
  Weight: 96.1626 kg

DRUGS (7)
  1. NASONEX [Concomitant]
  2. PEGINTERFERON [Concomitant]
  3. RIBAVIRIN [Concomitant]
  4. AUGMENTIN '125' [Concomitant]
  5. INCIVEK [Suspect]
     Dosage: 2250 MG 750 MG, 3 IN 1 D), ORAL
     Route: 048
     Dates: start: 20110826, end: 20111118
  6. ZOLPIDEM [Concomitant]
  7. SINGULAIR [Concomitant]

REACTIONS (2)
  - DRY SKIN [None]
  - RASH PRURITIC [None]
